FAERS Safety Report 5156098-9 (Version None)
Quarter: 2006Q4

REPORT INFORMATION
  Report Type: 
  Country: None (occurrence: None)
  Receive Date: 20061122
  Receipt Date: 20061114
  Transmission Date: 20070319
  Serious: Yes (Hospitalization, Other)
  Sender: FDA-Public Use
  Company Number: PHBS2006NZ17834

PATIENT
  Age: 73 Year
  Sex: Female

DRUGS (1)
  1. CLOZARIL [Suspect]
     Dosage: 100 MG QAM - 250 MG QHS
     Route: 048
     Dates: start: 20060319

REACTIONS (2)
  - BLOOD PRESSURE DECREASED [None]
  - MENTAL DISORDER [None]
